FAERS Safety Report 4747334-9 (Version None)
Quarter: 2005Q3

REPORT INFORMATION
  Report Type: 
  Country: None (occurrence: None)
  Receive Date: 20050817
  Receipt Date: 20050310
  Transmission Date: 20060218
  Serious: Yes (Hospitalization, Other)
  Sender: FDA-Public Use
  Company Number: US-MERCK-0503USA02045

PATIENT
  Age: 66 Year
  Sex: Female
  Weight: 91 kg

DRUGS (10)
  1. VIOXX [Suspect]
     Indication: ARTHRALGIA
     Route: 048
     Dates: start: 20000222, end: 20020204
  2. VIOXX [Suspect]
     Route: 048
     Dates: start: 20040503, end: 20040602
  3. VIOXX [Suspect]
     Indication: OSTEOARTHRITIS
     Route: 048
     Dates: start: 20000222, end: 20020204
  4. VIOXX [Suspect]
     Route: 048
     Dates: start: 20040503, end: 20040602
  5. LIPITOR [Concomitant]
     Indication: BLOOD CHOLESTEROL INCREASED
     Route: 065
  6. LEVOXYL [Concomitant]
     Route: 065
  7. SYNTHROID [Concomitant]
     Indication: THYROID DISORDER
     Route: 065
  8. RANITIDINE [Concomitant]
     Route: 065
  9. AMBIEN [Concomitant]
     Route: 065
  10. ACETAMINOPHEN AND HYDROCODONE BITARTRATE [Concomitant]
     Route: 065

REACTIONS (16)
  - ARTHROPATHY [None]
  - CARDIAC DISORDER [None]
  - CHEST DISCOMFORT [None]
  - CONSTIPATION [None]
  - CORONARY ARTERY ATHEROSCLEROSIS [None]
  - DYSPEPSIA [None]
  - DYSPHAGIA [None]
  - DYSPNOEA [None]
  - EMOTIONAL DISTRESS [None]
  - HYPERTENSION [None]
  - MUSCULOSKELETAL CHEST PAIN [None]
  - MYOCARDIAL INFARCTION [None]
  - NOCTURIA [None]
  - ODYNOPHAGIA [None]
  - OEDEMA PERIPHERAL [None]
  - STRESS INCONTINENCE [None]
